FAERS Safety Report 18130375 (Version 2)
Quarter: 2020Q3

REPORT INFORMATION
  Report Type: Report from Study
  Country: US (occurrence: US)
  Receive Date: 20200810
  Receipt Date: 20200908
  Transmission Date: 20201103
  Serious: Yes (Other)
  Sender: FDA-Public Use
  Company Number: US-PFIZER INC-2020241286

PATIENT
  Age: 59 Year
  Sex: Female

DRUGS (6)
  1. IBRANCE [Suspect]
     Active Substance: PALBOCICLIB
     Dosage: 100 MG, DAILY
     Route: 048
  2. IBRANCE [Suspect]
     Active Substance: PALBOCICLIB
     Dosage: 125 MG, CYCLIC, DAILY FOR 21 DAYS ON AND 7 DAYS OFF
     Route: 048
     Dates: start: 20200803
  3. FASLODEX [Concomitant]
     Active Substance: FULVESTRANT
     Dosage: UNK
     Route: 030
  4. IBRANCE [Suspect]
     Active Substance: PALBOCICLIB
     Indication: BREAST CANCER FEMALE
     Dosage: 75 MG, CYCLIC, ONCE DAILY FOR 21 DAYS ON, 7 DAYS OFF
     Route: 048
     Dates: start: 20200608, end: 2020
  5. IBRANCE [Suspect]
     Active Substance: PALBOCICLIB
     Dosage: 125 MG, CYCLIC, DAILY FOR 21 DAYS ON AND 7 DAYS OFF
     Route: 048
     Dates: start: 20200608, end: 20200830
  6. IBRANCE [Suspect]
     Active Substance: PALBOCICLIB
     Indication: BREAST CANCER FEMALE
     Dosage: 75 MG, CYCLIC, ONCE DAILY FOR 21 DAYS ON, 7 DAYS OFF
     Route: 048
     Dates: start: 2020, end: 20200802

REACTIONS (7)
  - Constipation [Recovered/Resolved]
  - Nasopharyngitis [Recovering/Resolving]
  - Red blood cell count decreased [Unknown]
  - White blood cell count decreased [Recovered/Resolved]
  - Myelosuppression [Unknown]
  - Cough [Recovering/Resolving]
  - Hot flush [Unknown]

NARRATIVE: CASE EVENT DATE: 2020
